FAERS Safety Report 8190592-1 (Version None)
Quarter: 2012Q1

REPORT INFORMATION
  Report Type: 
  Country: None (occurrence: None)
  Receive Date: 20120307
  Receipt Date: 20120229
  Transmission Date: 20120608
  Serious: Yes (Hospitalization, Other)
  Sender: FDA-Public Use
  Company Number: US-SANOFI-AVENTIS-2012SA013974

PATIENT
  Age: 81 Year
  Sex: Female

DRUGS (1)
  1. PLAVIX [Suspect]
     Dates: start: 20080101

REACTIONS (8)
  - THROMBOSIS [None]
  - DRUG LEVEL BELOW THERAPEUTIC [None]
  - BACK PAIN [None]
  - PULMONARY EMBOLISM [None]
  - MUSCLE SPASMS [None]
  - BLOOD PRESSURE INADEQUATELY CONTROLLED [None]
  - INTERNATIONAL NORMALISED RATIO INCREASED [None]
  - SWELLING [None]
